FAERS Safety Report 21682955 (Version 1)
Quarter: 2022Q4

REPORT INFORMATION
  Report Type: Spontaneous
  Country: KR (occurrence: KR)
  Receive Date: 20221205
  Receipt Date: 20221205
  Transmission Date: 20230113
  Serious: Yes (Life-Threatening, Hospitalization)
  Sender: FDA-Public Use
  Company Number: KR-GE HEALTHCARE-2022CSU008650

PATIENT
  Age: 52 Year
  Sex: Female

DRUGS (4)
  1. GADOLINIUM [Suspect]
     Active Substance: GADOLINIUM
     Indication: Magnetic resonance imaging head
     Dosage: UNK, SINGLE
     Route: 065
  2. GADOLINIUM [Suspect]
     Active Substance: GADOLINIUM
     Indication: Product used for unknown indication
  3. PROPRANOLOL [Suspect]
     Active Substance: PROPRANOLOL HYDROCHLORIDE
     Indication: Magnetic resonance imaging head
     Dosage: 80 MG
     Route: 048
  4. PROPRANOLOL [Suspect]
     Active Substance: PROPRANOLOL HYDROCHLORIDE
     Indication: Cardiac imaging procedure

REACTIONS (2)
  - Acute respiratory distress syndrome [Recovered/Resolved]
  - Anaphylactoid reaction [Recovered/Resolved]
